FAERS Safety Report 19046200 (Version 1)
Quarter: 2021Q1

REPORT INFORMATION
  Report Type: Other
  Country: US (occurrence: US)
  Receive Date: 20210323
  Receipt Date: 20210323
  Transmission Date: 20210420
  Serious: Yes (Other)
  Sender: FDA-Public Use
  Company Number: US-ROCHE-2790284

PATIENT
  Sex: Female

DRUGS (1)
  1. XELODA [Suspect]
     Active Substance: CAPECITABINE
     Indication: COLON CANCER
     Dosage: TAKE 5 TABLETS (2500MG) BY MOUTH TWICE A DAY ON DAYS 1?14 OF EACH 21 DAY CYCLE. TAKE WITH WATER, WIT
     Route: 048

REACTIONS (1)
  - Deafness [Unknown]
